FAERS Safety Report 6090376-4 (Version None)
Quarter: 2009Q1

REPORT INFORMATION
  Report Type: 
  Country: None (occurrence: None)
  Receive Date: 20090224
  Receipt Date: 20090218
  Transmission Date: 20090719
  Serious: Yes (Hospitalization)
  Sender: FDA-Public Use
  Company Number: IT-GILEAD-2009-0020406

PATIENT
  Sex: Female

DRUGS (1)
  1. ATRIPLA [Suspect]
     Indication: HIV INFECTION
     Route: 048
     Dates: start: 20090217, end: 20090217

REACTIONS (4)
  - ATAXIA [None]
  - DIZZINESS [None]
  - DRY MOUTH [None]
  - NAUSEA [None]
